FAERS Safety Report 21039231 (Version 1)
Quarter: 2022Q3

REPORT INFORMATION
  Report Type: Spontaneous
  Country: US (occurrence: US)
  Receive Date: 20220704
  Receipt Date: 20220704
  Transmission Date: 20221027
  Serious: Yes (Death, Other)
  Sender: FDA-Public Use
  Company Number: US-APOTEX-2022AP009324

PATIENT
  Sex: Female

DRUGS (1)
  1. AZELASTINE HYDROCHLORIDE [Suspect]
     Active Substance: AZELASTINE HYDROCHLORIDE
     Indication: Eye allergy
     Dosage: 1-2 DROPS ON THE RIGHT EYE
     Route: 047
     Dates: start: 202206, end: 202206

REACTIONS (6)
  - Death [Fatal]
  - Pruritus [Unknown]
  - Hypersensitivity [Unknown]
  - Product substitution issue [Unknown]
  - Treatment noncompliance [Unknown]
  - Eye pruritus [Unknown]

NARRATIVE: CASE EVENT DATE: 20220601
